FAERS Safety Report 6032491-7 (Version None)
Quarter: 2009Q1

REPORT INFORMATION
  Report Type: 
  Country: None (occurrence: None)
  Receive Date: 20090109
  Receipt Date: 20080922
  Transmission Date: 20090719
  Serious: No
  Sender: FDA-Public Use
  Company Number: A0748590A

PATIENT
  Age: 58 Year
  Sex: Female

DRUGS (5)
  1. TYKERB [Suspect]
     Indication: BREAST CANCER
     Dosage: 1TAB FIVE TIMES PER DAY
     Route: 048
  2. ADRIAMYCIN PFS [Concomitant]
  3. TAXOTERE [Concomitant]
  4. TAXOL [Concomitant]
  5. HERCEPTIN [Concomitant]

REACTIONS (1)
  - ADVERSE REACTION [None]
